FAERS Safety Report 24283911 (Version 1)
Quarter: 2024Q3

REPORT INFORMATION
  Report Type: Spontaneous
  Country: CN (occurrence: CN)
  Receive Date: 20240905
  Receipt Date: 20240905
  Transmission Date: 20241017
  Serious: Yes (Death, Hospitalization)
  Sender: STRIDES
  Company Number: CN-STRIDES ARCOLAB LIMITED-2024SP011087

PATIENT
  Age: 25 Year
  Sex: Male

DRUGS (1)
  1. PREDNISOLONE [Suspect]
     Active Substance: PREDNISOLONE
     Indication: Nephrotic syndrome
     Dosage: 50 MILLIGRAM, QD
     Route: 048

REACTIONS (7)
  - Haemorrhagic varicella syndrome [Fatal]
  - Cytomegalovirus infection reactivation [Fatal]
  - Disseminated intravascular coagulation [Fatal]
  - Sepsis [Fatal]
  - Cardio-respiratory arrest [Fatal]
  - Shock haemorrhagic [Fatal]
  - Acute hepatic failure [Unknown]
